FAERS Safety Report 6152779-9 (Version None)
Quarter: 2009Q2

REPORT INFORMATION
  Report Type: 
  Country: None (occurrence: None)
  Receive Date: 20090409
  Receipt Date: 20090331
  Transmission Date: 20091009
  Serious: Yes (Other)
  Sender: FDA-Public Use
  Company Number: KV200900433

PATIENT
  Age: 40 Year
  Sex: Female

DRUGS (1)
  1. PRIMACARE (PRENATAL VITAMIN) TABLET [Suspect]
     Indication: PRENATAL CARE
     Dosage: ORAL
     Route: 048

REACTIONS (3)
  - ABORTION SPONTANEOUS [None]
  - DRUG EXPOSURE DURING PREGNANCY [None]
  - PREGNANCY [None]
